FAERS Safety Report 14364157 (Version 1)
Quarter: 2018Q1

REPORT INFORMATION
  Report Type: Spontaneous
  Country: US (occurrence: US)
  Receive Date: 20180108
  Receipt Date: 20180108
  Transmission Date: 20180509
  Serious: Yes (Disabling, Other)
  Sender: FDA-Public Use
  Company Number: US-REGENERON PHARMACEUTICALS, INC.-2018-10026

PATIENT

DRUGS (4)
  1. EYLEA [Suspect]
     Active Substance: AFLIBERCEPT
     Indication: NEOVASCULAR AGE-RELATED MACULAR DEGENERATION
     Dosage: UNK, OS, EVERY 5 WEEKS
     Route: 031
     Dates: start: 2014
  2. EYLEA [Suspect]
     Active Substance: AFLIBERCEPT
     Dosage: 2 MG/50 ?L, OS, LAST DOSE
     Route: 031
     Dates: start: 20171218, end: 20171218
  3. LUCENTIS [Suspect]
     Active Substance: RANIBIZUMAB
     Indication: PRODUCT USED FOR UNKNOWN INDICATION
     Dosage: UNK
  4. EYLEA [Suspect]
     Active Substance: AFLIBERCEPT
     Indication: CHORIORETINOPATHY
     Dosage: 70 ?L, OS
     Route: 031
     Dates: start: 20171114, end: 20171114

REACTIONS (5)
  - Drug effect decreased [Unknown]
  - Incorrect dose administered [Unknown]
  - Blindness transient [Recovered/Resolved]
  - Post procedural complication [Unknown]
  - Off label use [Not Recovered/Not Resolved]

NARRATIVE: CASE EVENT DATE: 2014
